FAERS Safety Report 9260461 (Version 1)
Quarter: 2013Q2

REPORT INFORMATION
  Report Type: Spontaneous
  Country: US (occurrence: US)
  Receive Date: 20130429
  Receipt Date: 20130429
  Transmission Date: 20140414
  Serious: No
  Sender: FDA-Public Use
  Company Number: US-PFIZER INC-2013130550

PATIENT
  Age: 88 Year
  Sex: Female

DRUGS (1)
  1. ADVIL [Suspect]
     Indication: ARTHRITIS
     Dosage: TWO TABLETS OF 200MG, DAILY
     Route: 048

REACTIONS (1)
  - Urinary tract disorder [Unknown]
